FAERS Safety Report 4287824-9 (Version None)
Quarter: 2004Q1

REPORT INFORMATION
  Report Type: 
  Country: None (occurrence: None)
  Receive Date: 20040209
  Receipt Date: 20031003
  Transmission Date: 20041129
  Serious: No
  Sender: FDA-Public Use
  Company Number: US-GLAXOSMITHKLINE-A0428712A

PATIENT
  Age: 59 Year
  Sex: Female

DRUGS (8)
  1. PAXIL [Suspect]
     Indication: MOOD SWINGS
     Dosage: 12.5MG PER DAY
     Route: 048
     Dates: start: 20030920
  2. COUMADIN [Concomitant]
  3. COZAAR [Concomitant]
  4. TRIAM HCTZ [Concomitant]
  5. ALLEGRA [Concomitant]
  6. VITAMIN E [Concomitant]
  7. FLUOCINONIDE [Concomitant]
  8. ADVAIR DISKUS 100/50 [Concomitant]

REACTIONS (2)
  - PRURITUS [None]
  - URTICARIA [None]
